FAERS Safety Report 26109637 (Version 1)
Quarter: 2025Q4

REPORT INFORMATION
  Report Type: Spontaneous
  Country: EU (occurrence: EU)
  Receive Date: 20251201
  Receipt Date: 20251201
  Transmission Date: 20260118
  Serious: Yes (Hospitalization)
  Sender: MYLAN
  Company Number: None

PATIENT
  Age: 32 Year
  Sex: Male
  Weight: 74.1 kg

DRUGS (28)
  1. ACETAMINOPHEN [Suspect]
     Active Substance: ACETAMINOPHEN
     Indication: Headache
     Dosage: 4 GRAM, QD (1-1-1-1 IF NEEDED)
     Dates: start: 20251005, end: 20251101
  2. ACETAMINOPHEN [Suspect]
     Active Substance: ACETAMINOPHEN
     Dosage: 4 GRAM, QD (1-1-1-1 IF NEEDED)
     Route: 048
     Dates: start: 20251005, end: 20251101
  3. ACETAMINOPHEN [Suspect]
     Active Substance: ACETAMINOPHEN
     Dosage: 4 GRAM, QD (1-1-1-1 IF NEEDED)
     Route: 048
     Dates: start: 20251005, end: 20251101
  4. ACETAMINOPHEN [Suspect]
     Active Substance: ACETAMINOPHEN
     Dosage: 4 GRAM, QD (1-1-1-1 IF NEEDED)
     Dates: start: 20251005, end: 20251101
  5. OPDIVO [Suspect]
     Active Substance: NIVOLUMAB
     Indication: Metastatic malignant melanoma
     Dosage: 1 MILLIGRAM/KILOGRAM (1 MG/KG PER COURSE OF TREATMENT)
     Dates: start: 20250925, end: 20251016
  6. OPDIVO [Suspect]
     Active Substance: NIVOLUMAB
     Dosage: 1 MILLIGRAM/KILOGRAM (1 MG/KG PER COURSE OF TREATMENT)
     Route: 042
     Dates: start: 20250925, end: 20251016
  7. OPDIVO [Suspect]
     Active Substance: NIVOLUMAB
     Dosage: 1 MILLIGRAM/KILOGRAM (1 MG/KG PER COURSE OF TREATMENT)
     Route: 042
     Dates: start: 20250925, end: 20251016
  8. OPDIVO [Suspect]
     Active Substance: NIVOLUMAB
     Dosage: 1 MILLIGRAM/KILOGRAM (1 MG/KG PER COURSE OF TREATMENT)
     Dates: start: 20250925, end: 20251016
  9. YERVOY [Suspect]
     Active Substance: IPILIMUMAB
     Indication: Metastatic malignant melanoma
     Dosage: 3 MILLIGRAM/KILOGRAM (3 MG/KG PER COURSE OF TREATMENT)
     Dates: start: 20250925, end: 20251016
  10. YERVOY [Suspect]
     Active Substance: IPILIMUMAB
     Dosage: 3 MILLIGRAM/KILOGRAM (3 MG/KG PER COURSE OF TREATMENT)
     Route: 042
     Dates: start: 20250925, end: 20251016
  11. YERVOY [Suspect]
     Active Substance: IPILIMUMAB
     Dosage: 3 MILLIGRAM/KILOGRAM (3 MG/KG PER COURSE OF TREATMENT)
     Route: 042
     Dates: start: 20250925, end: 20251016
  12. YERVOY [Suspect]
     Active Substance: IPILIMUMAB
     Dosage: 3 MILLIGRAM/KILOGRAM (3 MG/KG PER COURSE OF TREATMENT)
     Dates: start: 20250925, end: 20251016
  13. CARBIMAZOLE [Suspect]
     Active Substance: CARBIMAZOLE
     Indication: Hyperthyroidism
     Dosage: 20 MILLIGRAM, QD
     Dates: start: 20251016, end: 20251101
  14. CARBIMAZOLE [Suspect]
     Active Substance: CARBIMAZOLE
     Dosage: 20 MILLIGRAM, QD
     Route: 048
     Dates: start: 20251016, end: 20251101
  15. CARBIMAZOLE [Suspect]
     Active Substance: CARBIMAZOLE
     Dosage: 20 MILLIGRAM, QD
     Route: 048
     Dates: start: 20251016, end: 20251101
  16. CARBIMAZOLE [Suspect]
     Active Substance: CARBIMAZOLE
     Dosage: 20 MILLIGRAM, QD
     Dates: start: 20251016, end: 20251101
  17. AMITRIPTYLINE HYDROCHLORIDE [Suspect]
     Active Substance: AMITRIPTYLINE HYDROCHLORIDE
     Indication: Headache
     Dosage: 25 DOSAGE FORM, QD (ORAL SOLUTION, 25 DROPS AT BEDTIME DAILY)
     Dates: start: 20250905, end: 20251101
  18. AMITRIPTYLINE HYDROCHLORIDE [Suspect]
     Active Substance: AMITRIPTYLINE HYDROCHLORIDE
     Dosage: 25 DOSAGE FORM, QD (ORAL SOLUTION, 25 DROPS AT BEDTIME DAILY)
     Route: 048
     Dates: start: 20250905, end: 20251101
  19. AMITRIPTYLINE HYDROCHLORIDE [Suspect]
     Active Substance: AMITRIPTYLINE HYDROCHLORIDE
     Dosage: 25 DOSAGE FORM, QD (ORAL SOLUTION, 25 DROPS AT BEDTIME DAILY)
     Route: 048
     Dates: start: 20250905, end: 20251101
  20. AMITRIPTYLINE HYDROCHLORIDE [Suspect]
     Active Substance: AMITRIPTYLINE HYDROCHLORIDE
     Dosage: 25 DOSAGE FORM, QD (ORAL SOLUTION, 25 DROPS AT BEDTIME DAILY)
     Dates: start: 20250905, end: 20251101
  21. ZOPICLONE [Suspect]
     Active Substance: ZOPICLONE
     Indication: Insomnia
     Dosage: 3.75 MILLIGRAM, QD (3.75 MG/DAY AT BEDTIME)
     Dates: start: 20251016, end: 20251101
  22. ZOPICLONE [Suspect]
     Active Substance: ZOPICLONE
     Dosage: 3.75 MILLIGRAM, QD (3.75 MG/DAY AT BEDTIME)
     Route: 048
     Dates: start: 20251016, end: 20251101
  23. ZOPICLONE [Suspect]
     Active Substance: ZOPICLONE
     Dosage: 3.75 MILLIGRAM, QD (3.75 MG/DAY AT BEDTIME)
     Route: 048
     Dates: start: 20251016, end: 20251101
  24. ZOPICLONE [Suspect]
     Active Substance: ZOPICLONE
     Dosage: 3.75 MILLIGRAM, QD (3.75 MG/DAY AT BEDTIME)
     Dates: start: 20251016, end: 20251101
  25. OXAZEPAM [Suspect]
     Active Substance: OXAZEPAM
     Indication: Insomnia
     Dosage: 10 MILLIGRAM, QD (10 MG AT NIGHT IF NEEDED)
     Dates: start: 20251016, end: 20251101
  26. OXAZEPAM [Suspect]
     Active Substance: OXAZEPAM
     Dosage: 10 MILLIGRAM, QD (10 MG AT NIGHT IF NEEDED)
     Route: 048
     Dates: start: 20251016, end: 20251101
  27. OXAZEPAM [Suspect]
     Active Substance: OXAZEPAM
     Dosage: 10 MILLIGRAM, QD (10 MG AT NIGHT IF NEEDED)
     Route: 048
     Dates: start: 20251016, end: 20251101
  28. OXAZEPAM [Suspect]
     Active Substance: OXAZEPAM
     Dosage: 10 MILLIGRAM, QD (10 MG AT NIGHT IF NEEDED)
     Dates: start: 20251016, end: 20251101

REACTIONS (1)
  - Hepatic cytolysis [Recovering/Resolving]

NARRATIVE: CASE EVENT DATE: 20251031
